FAERS Safety Report 6640051-X (Version None)
Quarter: 2010Q1

REPORT INFORMATION
  Report Type: 
  Country: None (occurrence: None)
  Receive Date: 20100315
  Receipt Date: 20100302
  Transmission Date: 20100710
  Serious: Yes (Hospitalization, Disabling)
  Sender: FDA-Public Use
  Company Number: JP-1181077

PATIENT
  Age: 40 Year
  Sex: Male

DRUGS (8)
  1. TRAVATAN Z [Suspect]
     Indication: GLAUCOMA
     Dosage: 1 GTT QD OD OPHTHALMIC
     Route: 047
     Dates: start: 20091008, end: 20100301
  2. DIAMOX [Concomitant]
  3. ASPARA K (ASPATATE POTASSIUM) [Concomitant]
  4. OLMESARTAN MEDOXOMIL [Concomitant]
  5. METLIGINE (MIDODRINE HYDROCHLORIDE) [Concomitant]
  6. NOVOLOG [Concomitant]
  7. LOPERAMIDE HCL [Concomitant]
  8. TIMOLOL MALEATE [Concomitant]

REACTIONS (4)
  - INJURY [None]
  - OCULAR HYPERAEMIA [None]
  - PSEUDOMONAS INFECTION [None]
  - ULCERATIVE KERATITIS [None]
